FAERS Safety Report 4556170-8 (Version None)
Quarter: 2005Q1

REPORT INFORMATION
  Report Type: 
  Country: None (occurrence: None)
  Receive Date: 20050103
  Receipt Date: 20041012
  Transmission Date: 20050727
  Serious: Yes (Hospitalization)
  Sender: FDA-Public Use
  Company Number: 2004UW20088

PATIENT
  Age: 39 Year
  Sex: Female
  Weight: 79.8331 kg

DRUGS (7)
  1. CRESTOR [Suspect]
     Dosage: 10 MG QD PO
     Route: 048
     Dates: start: 20040701, end: 20040901
  2. ELAVIL [Concomitant]
  3. WELLBUTRIN [Concomitant]
  4. ZOLOFT [Concomitant]
  5. AMBIEN [Concomitant]
  6. CLONAZEPAM [Concomitant]
  7. PREVACID [Concomitant]

REACTIONS (1)
  - PANCREATITIS [None]
